FAERS Safety Report 4327407-5 (Version None)
Quarter: 2004Q1

REPORT INFORMATION
  Report Type: 
  Country: None (occurrence: None)
  Receive Date: 20040330
  Receipt Date: 20030908
  Transmission Date: 20041129
  Serious: Yes (Hospitalization, Disabling, Other)
  Sender: FDA-Public Use
  Company Number: US-MERCK-0309USA00841

PATIENT
  Age: 50 Year
  Sex: Male
  Weight: 90 kg

DRUGS (22)
  1. MONOPRIL [Concomitant]
     Indication: HYPERTENSION
     Route: 065
     Dates: start: 19970612, end: 20000801
  2. MONOPRIL [Concomitant]
     Route: 065
     Dates: start: 20000901, end: 20001006
  3. PREVACID [Concomitant]
     Route: 065
     Dates: end: 20000101
  4. PREVACID [Concomitant]
     Route: 065
     Dates: start: 20000101, end: 20000101
  5. LEVAQUIN [Concomitant]
     Indication: SKIN LESION
     Route: 065
     Dates: start: 20000901
  6. LEVAQUIN [Concomitant]
     Indication: FOLLICULITIS
     Route: 065
     Dates: start: 20000901
  7. NAPROSYN [Concomitant]
     Indication: PAIN IN EXTREMITY
     Route: 065
     Dates: start: 19881220, end: 20000826
  8. NAPROSYN [Concomitant]
     Indication: OSTEOARTHRITIS
     Route: 065
     Dates: start: 19881220, end: 20000826
  9. ZANTAC [Concomitant]
     Route: 065
  10. VIOXX [Suspect]
     Indication: PAIN IN EXTREMITY
     Route: 048
     Dates: start: 20000801, end: 20000829
  11. VIOXX [Suspect]
     Route: 048
     Dates: start: 20000830, end: 20000903
  12. VIOXX [Suspect]
     Route: 048
     Dates: start: 20010101, end: 20010902
  13. VIOXX [Suspect]
     Route: 048
     Dates: start: 20000904, end: 20001001
  14. VIOXX [Suspect]
     Route: 048
     Dates: start: 20001002, end: 20000101
  15. VIOXX [Suspect]
     Indication: OSTEOARTHRITIS
     Route: 048
     Dates: start: 20000801, end: 20000829
  16. VIOXX [Suspect]
     Route: 048
     Dates: start: 20000830, end: 20000903
  17. VIOXX [Suspect]
     Route: 048
     Dates: start: 20010101, end: 20010902
  18. VIOXX [Suspect]
     Route: 048
     Dates: start: 20000904, end: 20001001
  19. VIOXX [Suspect]
     Route: 048
     Dates: start: 20001002, end: 20000101
  20. ZOCOR [Concomitant]
     Route: 048
     Dates: start: 19980101, end: 20030930
  21. EFFEXOR [Concomitant]
     Route: 065
  22. AMBIEN [Concomitant]
     Indication: INSOMNIA
     Route: 065

REACTIONS (18)
  - AORTIC VALVE INCOMPETENCE [None]
  - BENIGN PROSTATIC HYPERPLASIA [None]
  - CAROTID ARTERY STENOSIS [None]
  - CARPAL TUNNEL SYNDROME [None]
  - CEREBROVASCULAR ACCIDENT [None]
  - CERVICOBRACHIAL SYNDROME [None]
  - COLON ADENOMA [None]
  - CONSTIPATION [None]
  - EPICONDYLITIS [None]
  - HYPERTENSION [None]
  - INSOMNIA [None]
  - LOW DENSITY LIPOPROTEIN INCREASED [None]
  - MITRAL VALVE INCOMPETENCE [None]
  - RASH ERYTHEMATOUS [None]
  - TREATMENT NONCOMPLIANCE [None]
  - TRIGGER FINGER [None]
  - URINARY INCONTINENCE [None]
  - VENTRICULAR HYPERTROPHY [None]
